FAERS Safety Report 9922266 (Version 2)
Quarter: 2014Q2

REPORT INFORMATION
  Report Type: Spontaneous
  Country: US (occurrence: US)
  Receive Date: 20140225
  Receipt Date: 20140513
  Transmission Date: 20141212
  Serious: No
  Sender: FDA-Public Use
  Company Number: US-GILEAD-2014-0095220

PATIENT
  Sex: Female

DRUGS (4)
  1. LETAIRIS [Suspect]
     Indication: PULMONARY HYPERTENSION
     Dosage: 5 MG, QD
     Route: 065
     Dates: start: 20120628, end: 20140202
  2. LETAIRIS [Suspect]
     Indication: CORONARY ARTERY DISEASE
  3. LETAIRIS [Suspect]
     Indication: PULMONARY VEIN STENOSIS
  4. REVATIO [Concomitant]

REACTIONS (1)
  - Hyperhidrosis [Unknown]
